FAERS Safety Report 8756693 (Version 2)
Quarter: 2012Q4

REPORT INFORMATION
  Report Type: 
  Country: US (occurrence: US)
  Receive Date: 20120828
  Receipt Date: 20120828
  Transmission Date: 20130627
  Serious: Yes (Other)
  Sender: FDA-Public Use
  Company Number: PHEH2012US015412

PATIENT
  Age: 75 Year
  Sex: Female
  Weight: 65.31 kg

DRUGS (13)
  1. EXJADE [Suspect]
     Indication: IRON OVERLOAD
     Dosage: 500 mg, daily
     Route: 048
     Dates: start: 20111113, end: 20120815
  2. EXJADE [Suspect]
     Dosage: 500 mg, daily
     Route: 048
     Dates: start: 20120825
  3. JANUVIA [Concomitant]
     Dosage: 100 mg, UNK
  4. VOLTAREN [Concomitant]
     Dosage: 100 mg, UNK
  5. LASIX [Concomitant]
     Dosage: 20 mg, UNK
  6. AMLODIPINE [Concomitant]
     Dosage: 5 mg, UNK
  7. FOSINOPRIL [Concomitant]
     Dosage: 40 mg, UNK
  8. SOTALOL AF [Concomitant]
     Dosage: 120 mg, UNK
  9. LANSOPRAZOLE [Concomitant]
     Dosage: 30 mg, UNK
  10. FOLIC ACID [Concomitant]
     Dosage: 1 mg, UNK
  11. KLOR-CON [Concomitant]
     Dosage: UNK UKN, UNK
  12. ASPIRIN [Concomitant]
     Dosage: 81 mg, UNK
  13. ALEVE [Concomitant]
     Dosage: 220 mg, UNK

REACTIONS (5)
  - Cystitis [Unknown]
  - Urine output decreased [Unknown]
  - Anuria [Unknown]
  - Diarrhoea [Unknown]
  - Insomnia [Unknown]
